FAERS Safety Report 9386676 (Version 1)
Quarter: 2013Q3

REPORT INFORMATION
  Report Type: Spontaneous
  Country: US (occurrence: None)
  Receive Date: 20130703
  Receipt Date: 20130703
  Transmission Date: 20140515
  Serious: Yes (Hospitalization)
  Sender: FDA-Public Use
  Company Number: None

PATIENT
  Age: 58 Year
  Sex: Male
  Weight: 104.78 kg

DRUGS (16)
  1. XARELTO [Suspect]
     Indication: ATRIAL FIBRILLATION
     Route: 048
     Dates: start: 20120620, end: 20130624
  2. CARDIZEM [Concomitant]
  3. ACIDOPHILUS [Concomitant]
  4. CARVEDILOL [Concomitant]
  5. COLACE [Concomitant]
  6. CYPROHEPTADINE-BU [Concomitant]
  7. PEPCID [Concomitant]
  8. ENALAPRIL MALEATE [Concomitant]
  9. FERROUS SULFATE [Concomitant]
  10. XARELTO [Concomitant]
  11. RENA-VITE [Concomitant]
  12. ZOCOR [Concomitant]
  13. NEPRO [Concomitant]
  14. RENVELA [Concomitant]
  15. PAXIL [Concomitant]
  16. OXYCOTIN [Concomitant]

REACTIONS (3)
  - Rectal haemorrhage [None]
  - Haemoglobin decreased [None]
  - Haematocrit decreased [None]
